FAERS Safety Report 5563955-8 (Version None)
Quarter: 2007Q4

REPORT INFORMATION
  Report Type: 
  Country: None (occurrence: None)
  Receive Date: 20071217
  Receipt Date: 20071205
  Transmission Date: 20080405
  Serious: Yes (Death, Other)
  Sender: FDA-Public Use
  Company Number: JP-PFIZER INC-2004221212JP

PATIENT
  Age: 55 Year
  Sex: Female
  Weight: 86 kg

DRUGS (3)
  1. FARMORUBICINA RD [Suspect]
     Indication: BREAST CANCER FEMALE
     Route: 042
     Dates: start: 20040423, end: 20040514
  2. FLUOROURACIL [Concomitant]
     Indication: BREAST CANCER FEMALE
     Route: 042
     Dates: start: 20040423, end: 20040514
  3. CYCLOPHOSPHAMIDE [Concomitant]
     Indication: BREAST CANCER FEMALE
     Route: 042
     Dates: start: 20040423, end: 20040514

REACTIONS (1)
  - DISSEMINATED INTRAVASCULAR COAGULATION [None]
